FAERS Safety Report 9739246 (Version 1)
Quarter: 2013Q4

REPORT INFORMATION
  Report Type: Spontaneous
  Country: TR (occurrence: TR)
  Receive Date: 20131209
  Receipt Date: 20131209
  Transmission Date: 20140711
  Serious: Yes (Hospitalization)
  Sender: FDA-Public Use
  Company Number: TR-NOVOPROD-394426

PATIENT
  Sex: Female
  Weight: 2.58 kg

DRUGS (5)
  1. NOVORAPID FLEXPEN [Suspect]
     Indication: GESTATIONAL DIABETES
     Dosage: 9 U, QD
     Route: 064
     Dates: start: 20130817, end: 20130910
  2. NOVORAPID FLEXPEN [Suspect]
     Indication: GESTATIONAL DIABETES
     Dosage: 9 U, QD
     Route: 064
     Dates: start: 20130817, end: 20130910
  3. IRON                               /00023503/ [Concomitant]
     Indication: PREGNANCY
     Dosage: 1 TAB, QD
     Route: 064
     Dates: start: 201304
  4. ELEVIT                             /01730301/ [Concomitant]
     Indication: PREGNANCY
     Dosage: 1 TAB, QD
     Route: 064
     Dates: start: 201304
  5. DEVIT D3 [Concomitant]
     Indication: PREGNANCY
     Dosage: 1 TAB, QD
     Route: 064
     Dates: start: 201304

REACTIONS (3)
  - Premature baby [Recovered/Resolved]
  - Poor sucking reflex [Recovered/Resolved]
  - Vomiting neonatal [Recovered/Resolved]
